FAERS Safety Report 13167826 (Version 1)
Quarter: 2017Q1

REPORT INFORMATION
  Report Type: Spontaneous
  Country: US (occurrence: US)
  Receive Date: 20170131
  Receipt Date: 20170131
  Transmission Date: 20170428
  Serious: No
  Sender: FDA-Public Use
  Company Number: US-TEVA-735258ACC

PATIENT
  Sex: Male

DRUGS (1)
  1. AMRIX [Suspect]
     Active Substance: CYCLOBENZAPRINE HYDROCHLORIDE
     Route: 065

REACTIONS (1)
  - Somnolence [Unknown]
